FAERS Safety Report 5376992-3 (Version None)
Quarter: 2007Q2

REPORT INFORMATION
  Report Type: 
  Country: None (occurrence: None)
  Receive Date: 20070628
  Receipt Date: 20070628
  Transmission Date: 20071010
  Serious: Yes (Death)
  Sender: FDA-Public Use
  Company Number: None

PATIENT
  Sex: Male

DRUGS (11)
  1. REVLIMID [Suspect]
     Indication: MULTIPLE MYELOMA
     Dosage: 5MG  DAILY 21D/28D  PO
     Route: 048
  2. TRILISATE [Concomitant]
  3. ATIVAN [Concomitant]
  4. MORPHINE [Concomitant]
  5. CEPHALEXIN [Concomitant]
  6. CIPRO [Concomitant]
  7. CLINDAMYCIN HCL [Concomitant]
  8. CLONAZEPAM [Concomitant]
  9. NEUPOGEN [Concomitant]
  10. FOLIC ACID [Concomitant]
  11. ZANTAC [Concomitant]

REACTIONS (4)
  - NEUTROPENIA [None]
  - PANCYTOPENIA [None]
  - REFUSAL OF TREATMENT BY PATIENT [None]
  - SKIN INFECTION [None]
